FAERS Safety Report 8775363 (Version 2)
Quarter: 2012Q4

REPORT INFORMATION
  Report Type: Report from Study
  Country: US (occurrence: US)
  Receive Date: 20120910
  Receipt Date: 20120925
  Transmission Date: 20130627
  Serious: Yes (Other)
  Sender: FDA-Public Use
  Company Number: US-ABBOTT-12P-163-0959914-00

PATIENT
  Sex: Female

DRUGS (5)
  1. HUMIRA 40 MG/0.8 ML PEN [Suspect]
     Indication: JUVENILE ARTHRITIS
     Dates: start: 2005
  2. PREDNISONE [Concomitant]
     Indication: PRODUCT USED FOR UNKNOWN INDICATION
  3. KARIVA [Concomitant]
     Indication: CONTRACEPTION
  4. MULTIVITAMINS WITH IRON [Concomitant]
     Indication: VITAMIN SUPPLEMENTATION
     Dosage: Daily
  5. CALCIUM [Concomitant]
     Indication: MINERAL SUPPLEMENTATION

REACTIONS (8)
  - Osteoarthritis [Unknown]
  - Injection site erythema [Unknown]
  - Injection site papule [Unknown]
  - Injection site pruritus [Unknown]
  - Injection site pain [Unknown]
  - Attention deficit/hyperactivity disorder [Unknown]
  - Depression [Unknown]
  - Panic disorder [Unknown]
